FAERS Safety Report 25630612 (Version 1)
Quarter: 2025Q3

REPORT INFORMATION
  Report Type: Report from Study
  Country: US (occurrence: US)
  Receive Date: 20250801
  Receipt Date: 20250801
  Transmission Date: 20251020
  Serious: Yes (Other)
  Sender: AUROBINDO
  Company Number: US-AUROBINDO-AUR-APL-2025-038160

PATIENT

DRUGS (5)
  1. CYCLOPHOSPHAMIDE [Suspect]
     Active Substance: CYCLOPHOSPHAMIDE
     Indication: Prophylaxis against graft versus host disease
     Route: 065
  2. BUDESONIDE [Suspect]
     Active Substance: BUDESONIDE
     Indication: Prophylaxis against graft versus host disease
     Route: 048
  3. MYCOPHENOLIC ACID [Suspect]
     Active Substance: MYCOPHENOLIC ACID
     Indication: Prophylaxis against graft versus host disease
     Dosage: 15 MILLIGRAM/KILOGRAM, 3 TIMES A DAY
  4. FLUDARABINE [Suspect]
     Active Substance: FLUDARABINE PHOSPHATE
     Indication: Prophylaxis
  5. TACROLIMUS [Suspect]
     Active Substance: TACROLIMUS
     Indication: Prophylaxis
     Route: 065

REACTIONS (1)
  - Drug ineffective [Unknown]
